FAERS Safety Report 14125476 (Version 1)
Quarter: 2017Q4

REPORT INFORMATION
  Report Type: Spontaneous
  Country: US (occurrence: US)
  Receive Date: 20171025
  Receipt Date: 20171025
  Transmission Date: 20180321
  Serious: No
  Sender: FDA-Public Use
  Company Number: US-BAUSCH-BL-2016-027608

PATIENT
  Age: 55 Year
  Sex: Male
  Weight: 81.72 kg

DRUGS (3)
  1. LISINOPRIL. [Concomitant]
     Active Substance: LISINOPRIL
     Indication: PRODUCT USED FOR UNKNOWN INDICATION
  2. LIBRAX [Suspect]
     Active Substance: CHLORDIAZEPOXIDE HYDROCHLORIDE\CLIDINIUM BROMIDE
     Indication: IRRITABLE BOWEL SYNDROME
     Dosage: 5 MG-2.5 MG STRENGTH
     Route: 048
     Dates: start: 201602, end: 20161108
  3. CRESTOR [Concomitant]
     Active Substance: ROSUVASTATIN CALCIUM
     Indication: PRODUCT USED FOR UNKNOWN INDICATION

REACTIONS (4)
  - Agitation [Recovering/Resolving]
  - Mood swings [Recovering/Resolving]
  - Fatigue [Recovering/Resolving]
  - Somnolence [Recovering/Resolving]

NARRATIVE: CASE EVENT DATE: 201609
